FAERS Safety Report 13086357 (Version 1)
Quarter: 2017Q1

REPORT INFORMATION
  Report Type: Spontaneous
  Country: SE (occurrence: SE)
  Receive Date: 20170104
  Receipt Date: 20170104
  Transmission Date: 20170428
  Serious: Yes (Other)
  Sender: FDA-Public Use
  Company Number: SE-REGENERON PHARMACEUTICALS, INC.-2016-21845

PATIENT

DRUGS (3)
  1. EYLEA [Suspect]
     Active Substance: AFLIBERCEPT
     Indication: PRODUCT USED FOR UNKNOWN INDICATION
     Dosage: TOTAL OF 3 INJECTIONS PRIOR TO EVENT ONSET
     Route: 031
  2. EYLEA [Suspect]
     Active Substance: AFLIBERCEPT
     Dosage: ONCE, LAST IVT INJECTION PRIOR TO THE EVENT ONSET
     Route: 031
     Dates: start: 20160905, end: 20160905
  3. KLORAMFENIKOL [Concomitant]
     Indication: PROPHYLAXIS

REACTIONS (2)
  - Blindness [Unknown]
  - Endophthalmitis [Recovered/Resolved]
